FAERS Safety Report 8283052-0 (Version None)
Quarter: 2012Q2

REPORT INFORMATION
  Report Type: 
  Country: None (occurrence: None)
  Receive Date: 20120413
  Receipt Date: 20120405
  Transmission Date: 20120825
  Serious: Yes (Hospitalization)
  Sender: FDA-Public Use
  Company Number: BW-ABBOTT-12P-019-0922531-00

PATIENT
  Sex: Female
  Weight: 77.9 kg

DRUGS (6)
  1. FERROUS SULFATE TAB [Concomitant]
     Indication: MINERAL SUPPLEMENTATION
     Dates: start: 20111103
  2. ERYTHROMYCIN [Concomitant]
     Indication: VAGINAL DISCHARGE
     Dates: start: 20120229, end: 20120306
  3. LOPINAVIR/RITONAVIR [Suspect]
     Indication: HIV INFECTION
     Dosage: 400/100 MG
     Route: 048
     Dates: end: 20110101
  4. CEFTRIAXONE [Concomitant]
     Indication: VAGINAL DISCHARGE
     Dates: start: 20120229, end: 20120229
  5. LOPINAVIR/RITONAVIR [Suspect]
     Dosage: 400/100 MG
     Route: 048
     Dates: start: 20111103
  6. LAMIVUDINE + ZIDOVUDINE [Concomitant]
     Indication: HIV INFECTION
     Dosage: 300/150MG TWICE A DAY
     Route: 048
     Dates: start: 20111103

REACTIONS (1)
  - PREMATURE RUPTURE OF MEMBRANES [None]
